FAERS Safety Report 9401384 (Version 1)
Quarter: 2013Q3

REPORT INFORMATION
  Report Type: Spontaneous
  Country: CN (occurrence: CN)
  Receive Date: 20130715
  Receipt Date: 20130715
  Transmission Date: 20140515
  Serious: Yes (Other)
  Sender: FDA-Public Use
  Company Number: CN-BAXTER-2013BAX026552

PATIENT
  Age: 44 Year
  Sex: Male
  Weight: 78 kg

DRUGS (4)
  1. 5% GLUCOSE INJECTION [Suspect]
     Indication: MEDICATION DILUTION
     Route: 042
     Dates: start: 20111228, end: 20111228
  2. CREATININE PHOSPHATE SODIUM [Suspect]
     Indication: ACUTE MYOCARDIAL INFARCTION
     Route: 042
     Dates: start: 20111228, end: 20111228
  3. POTASSIUM ASPARTATE [Suspect]
     Indication: ACUTE MYOCARDIAL INFARCTION
     Route: 042
     Dates: start: 20111228, end: 20111228
  4. MAGNESIUM ASPARTATE [Suspect]
     Indication: ACUTE MYOCARDIAL INFARCTION
     Route: 042
     Dates: start: 20111228, end: 20111228

REACTIONS (2)
  - Feeling cold [Recovered/Resolved]
  - Body temperature increased [None]
